FAERS Safety Report 9711090 (Version 2)
Quarter: 2014Q1

REPORT INFORMATION
  Report Type: Spontaneous
  Country: NZ (occurrence: NZ)
  Receive Date: 20131126
  Receipt Date: 20140221
  Transmission Date: 20141002
  Serious: Yes (Life-Threatening, Other)
  Sender: FDA-Public Use
  Company Number: NZ-CELGENEUS-118-20785-13112096

PATIENT
  Age: 42 Year
  Sex: Female

DRUGS (1)
  1. THALOMID [Suspect]
     Indication: BEHCET^S SYNDROME
     Route: 048

REACTIONS (1)
  - Non-small cell lung cancer metastatic [Not Recovered/Not Resolved]
